FAERS Safety Report 4981288-5 (Version None)
Quarter: 2006Q2

REPORT INFORMATION
  Report Type: 
  Country: None (occurrence: None)
  Receive Date: 20060412
  Receipt Date: 20060330
  Transmission Date: 20061013
  Serious: Yes (Hospitalization)
  Sender: FDA-Public Use
  Company Number: 200610049BBE

PATIENT
  Age: 5 Year
  Sex: Female
  Weight: 17.6 kg

DRUGS (11)
  1. GAMIMUNE N 10% [Suspect]
     Indication: ACUTE LYMPHOCYTIC LEUKAEMIA
     Dosage: SEE IMAGE
     Route: 042
     Dates: start: 20060217
  2. GAMIMUNE N 10% [Suspect]
     Indication: ACUTE LYMPHOCYTIC LEUKAEMIA
     Dosage: SEE IMAGE
     Route: 042
     Dates: start: 20060217
  3. GAMIMUNE N 10% [Suspect]
     Route: 042
  4. TYLENOL (CAPLET) [Concomitant]
  5. ANTIBIOTICS [Concomitant]
  6. CHEMOTHERAPY MEDICATIONS [Concomitant]
  7. DEXAMETHASONE [Concomitant]
  8. METHOTREXATE [Concomitant]
  9. SEPTRA [Concomitant]
  10. TIMENTIN [Concomitant]
  11. VINCRISTINE [Concomitant]

REACTIONS (4)
  - HAEMOGLOBIN DECREASED [None]
  - HAEMOLYSIS [None]
  - NAUSEA [None]
  - PYREXIA [None]
